FAERS Safety Report 17741661 (Version 8)
Quarter: 2023Q4

REPORT INFORMATION
  Report Type: Spontaneous
  Country: SE (occurrence: SE)
  Receive Date: 20200504
  Receipt Date: 20231222
  Transmission Date: 20240110
  Serious: Yes (Life-Threatening, Disabling, Other)
  Sender: FDA-Public Use
  Company Number: SE-SHIRE-SE202014877

PATIENT
  Sex: Female
  Weight: 76 kg

DRUGS (20)
  1. LISDEXAMFETAMINE DIMESYLATE [Suspect]
     Active Substance: LISDEXAMFETAMINE DIMESYLATE
     Indication: Product used for unknown indication
     Dosage: UNK
     Route: 065
     Dates: start: 201509
  2. LISDEXAMFETAMINE DIMESYLATE [Suspect]
     Active Substance: LISDEXAMFETAMINE DIMESYLATE
     Dosage: 30 MILLIGRAM, QD
     Route: 065
  3. LISDEXAMFETAMINE DIMESYLATE [Suspect]
     Active Substance: LISDEXAMFETAMINE DIMESYLATE
     Dosage: UNK
     Route: 065
  4. LISDEXAMFETAMINE DIMESYLATE [Suspect]
     Active Substance: LISDEXAMFETAMINE DIMESYLATE
     Dosage: 90 MILLIGRAM, QD
     Route: 065
     Dates: end: 201811
  5. LITHIUM [Suspect]
     Active Substance: LITHIUM
     Indication: Bipolar disorder
     Dosage: UNK
     Route: 065
  6. LITHIUM [Suspect]
     Active Substance: LITHIUM
     Indication: Psychotic disorder
  7. LITHIUM [Suspect]
     Active Substance: LITHIUM
     Indication: Frontal lobe epilepsy
  8. LITHIUM [Suspect]
     Active Substance: LITHIUM
     Indication: Seizure
  9. LITHIUM SULFATE [Suspect]
     Active Substance: LITHIUM SULFATE
     Indication: Bipolar disorder
     Dosage: 5 DOSAGE FORM, QD
     Route: 048
     Dates: start: 20181025, end: 20200114
  10. LITHIUM SULFATE [Suspect]
     Active Substance: LITHIUM SULFATE
     Indication: Seizure
  11. LITHIUM SULFATE [Suspect]
     Active Substance: LITHIUM SULFATE
     Indication: Myoclonus
  12. LITHIUM SULFATE [Suspect]
     Active Substance: LITHIUM SULFATE
     Indication: Psychotic disorder
  13. LITHIUM SULFATE [Suspect]
     Active Substance: LITHIUM SULFATE
     Indication: Frontal lobe epilepsy
  14. TRIMEPRAZINE [Suspect]
     Active Substance: TRIMEPRAZINE
     Indication: Product used for unknown indication
     Dosage: UNK
     Route: 065
     Dates: start: 20181116, end: 20190501
  15. QUETIAPINE [Concomitant]
     Active Substance: QUETIAPINE
     Indication: Product used for unknown indication
     Dosage: UNK
     Route: 065
     Dates: start: 20181025, end: 20190515
  16. ARIPIPRAZOLE [Concomitant]
     Active Substance: ARIPIPRAZOLE
     Indication: Mania
     Dosage: UNK
     Route: 065
  17. NITRAZEPAM [Concomitant]
     Active Substance: NITRAZEPAM
     Dosage: UNK
     Route: 065
     Dates: start: 2020, end: 2020
  18. PHENYLPROPANOLAMINE [Concomitant]
     Active Substance: PHENYLPROPANOLAMINE
     Indication: Paraesthesia
     Dosage: UNK
     Route: 065
  19. BUPROPION HYDROCHLORIDE [Concomitant]
     Active Substance: BUPROPION HYDROCHLORIDE
     Indication: Product used for unknown indication
     Dosage: 150 MILLIGRAM
     Route: 065
     Dates: start: 20181119, end: 20190615
  20. ABILIFY [Concomitant]
     Active Substance: ARIPIPRAZOLE
     Indication: Mania
     Dosage: UNK
     Route: 065

REACTIONS (53)
  - Bipolar disorder [Unknown]
  - Frontal lobe epilepsy [Recovered/Resolved with Sequelae]
  - Arrhythmia [Unknown]
  - Craniocerebral injury [Unknown]
  - Confusional state [Unknown]
  - Amnesia [Unknown]
  - Head discomfort [Recovered/Resolved with Sequelae]
  - Cerebral disorder [Unknown]
  - Muscle twitching [Unknown]
  - Musculoskeletal stiffness [Unknown]
  - Paralysis [Recovered/Resolved with Sequelae]
  - Circadian rhythm sleep disorder [Unknown]
  - Dysmenorrhoea [Recovered/Resolved]
  - Thirst [Recovered/Resolved with Sequelae]
  - Hunger [Recovered/Resolved with Sequelae]
  - Weight increased [Recovered/Resolved with Sequelae]
  - Brain oedema [Recovered/Resolved with Sequelae]
  - Myoclonus [Recovered/Resolved with Sequelae]
  - Ill-defined disorder [Recovered/Resolved]
  - Electric shock sensation [Recovered/Resolved]
  - Blunted affect [Recovered/Resolved with Sequelae]
  - Indifference [Recovered/Resolved with Sequelae]
  - Epilepsy [Recovered/Resolved with Sequelae]
  - Apathy [Recovered/Resolved with Sequelae]
  - Akathisia [Unknown]
  - Nervous system disorder [Recovered/Resolved with Sequelae]
  - Face oedema [Recovered/Resolved with Sequelae]
  - Drug interaction [Unknown]
  - Abdominal distension [Unknown]
  - Reversible cerebral vasoconstriction syndrome [Recovered/Resolved with Sequelae]
  - Lethargy [Recovered/Resolved with Sequelae]
  - Sluggishness [Recovered/Resolved with Sequelae]
  - Depressed level of consciousness [Recovered/Resolved]
  - Mental impairment [Recovered/Resolved with Sequelae]
  - Brain fog [Unknown]
  - Syncope [Unknown]
  - Mania [Unknown]
  - Fatigue [Recovered/Resolved with Sequelae]
  - Aggression [Unknown]
  - Depression [Unknown]
  - Euphoric mood [Unknown]
  - Hypomania [Unknown]
  - Alopecia [Unknown]
  - Paraesthesia [Recovered/Resolved]
  - Headache [Recovered/Resolved]
  - Tinnitus [Recovered/Resolved]
  - Tremor [Unknown]
  - Partial seizures [Recovered/Resolved with Sequelae]
  - Psychotic disorder [Unknown]
  - Transient ischaemic attack [Unknown]
  - Seizure [Unknown]
  - Hypoaesthesia [Unknown]
  - Anxiety [Unknown]

NARRATIVE: CASE EVENT DATE: 20160101
